FAERS Safety Report 20759341 (Version 1)
Quarter: 2022Q2

REPORT INFORMATION
  Report Type: Spontaneous
  Country: US (occurrence: US)
  Receive Date: 20220427
  Receipt Date: 20220427
  Transmission Date: 20220720
  Serious: No
  Sender: FDA-Public Use
  Company Number: US-BioHaven Pharmaceuticals-2021BHV002953

PATIENT
  Age: 44 Year
  Sex: Female

DRUGS (1)
  1. NURTEC ODT [Suspect]
     Active Substance: RIMEGEPANT SULFATE
     Indication: Product used for unknown indication
     Dosage: TAKEN ONCE
     Route: 065
     Dates: start: 20211129, end: 20211129

REACTIONS (3)
  - Lip swelling [Recovered/Resolved]
  - Pruritus [Recovered/Resolved]
  - Chapped lips [Recovered/Resolved]

NARRATIVE: CASE EVENT DATE: 20211129
